FAERS Safety Report 5315954-9 (Version None)
Quarter: 2007Q2

REPORT INFORMATION
  Report Type: 
  Country: None (occurrence: None)
  Receive Date: 20070503
  Receipt Date: 20070419
  Transmission Date: 20071010
  Serious: Yes (Hospitalization)
  Sender: FDA-Public Use
  Company Number: JP-ROCHE-438260

PATIENT
  Age: 5 Year
  Sex: Male

DRUGS (5)
  1. TAMIFLU [Suspect]
     Route: 048
     Dates: start: 20050301
  2. TAMIFLU [Suspect]
     Route: 048
     Dates: start: 20060221, end: 20060221
  3. ASVERIN [Concomitant]
     Route: 048
  4. MUCODYNE [Concomitant]
     Dosage: FORM:FINE GRANULE
     Route: 048
  5. TELGIN G [Concomitant]
     Route: 048

REACTIONS (1)
  - ABNORMAL BEHAVIOUR [None]
